FAERS Safety Report 7458250-6 (Version None)
Quarter: 2011Q2

REPORT INFORMATION
  Report Type: 
  Country: None (occurrence: None)
  Receive Date: 20110504
  Receipt Date: 20110427
  Transmission Date: 20111010
  Serious: Yes (Other)
  Sender: FDA-Public Use
  Company Number: KR-MERCK-1104USA04139

PATIENT

DRUGS (1)
  1. CANCIDAS [Suspect]
     Indication: ANTIFUNGAL TREATMENT
     Route: 051

REACTIONS (1)
  - RESPIRATORY DISORDER [None]
